FAERS Safety Report 21906935 (Version 2)
Quarter: 2023Q1

REPORT INFORMATION
  Report Type: Report from Study
  Country: US (occurrence: US)
  Receive Date: 20230125
  Receipt Date: 20230130
  Transmission Date: 20230418
  Serious: No
  Sender: FDA-Public Use
  Company Number: US-002147023-NVSC2023US013140

PATIENT
  Sex: Female

DRUGS (1)
  1. SCEMBLIX [Suspect]
     Active Substance: ASCIMINIB HYDROCHLORIDE
     Indication: Product used for unknown indication
     Dosage: UNK
     Route: 048

REACTIONS (7)
  - Food interaction [Unknown]
  - Feeling hot [Unknown]
  - Cardiac disorder [Unknown]
  - Asthenia [Unknown]
  - Hypertension [Unknown]
  - Dizziness [Unknown]
  - Dyspnoea [Unknown]
